FAERS Safety Report 11281088 (Version 2)
Quarter: 2015Q3

REPORT INFORMATION
  Report Type: Spontaneous
  Country: CN (occurrence: CN)
  Receive Date: 20150717
  Receipt Date: 20150723
  Transmission Date: 20151125
  Serious: Yes (Hospitalization)
  Sender: FDA-Public Use
  Company Number: CN-009507513-1507CHN003400

PATIENT
  Age: 41 Year
  Sex: Male
  Weight: 58.5 kg

DRUGS (8)
  1. CISPLATIN. [Concomitant]
     Active Substance: CISPLATIN
     Indication: CHEMOTHERAPY
     Dosage: 30 MG, DAY1-DAY4, TREATMENT CYCLE 1/UNK
     Route: 042
     Dates: start: 20150624, end: 20150627
  2. DEXAMETHASONE. [Concomitant]
     Active Substance: DEXAMETHASONE
     Indication: ANTIALLERGIC THERAPY
     Dosage: 3.75 MG, QD
     Route: 048
     Dates: start: 20150623, end: 20150623
  3. MAGNESIUM ISOGLYCYRRHIZINATE [Concomitant]
     Indication: PROPHYLAXIS
     Dosage: 40.0 ML/CC, QD
     Route: 042
     Dates: start: 20150624, end: 20150624
  4. EMEND [Suspect]
     Active Substance: APREPITANT
     Dosage: 80 MG, ONCE
     Route: 048
     Dates: start: 20150626, end: 20150626
  5. ALIMTA [Concomitant]
     Active Substance: PEMETREXED DISODIUM
     Indication: CHEMOTHERAPY
     Dosage: 1 G, D1
     Route: 042
     Dates: start: 20150624, end: 20150624
  6. EMEND [Suspect]
     Active Substance: APREPITANT
     Dosage: 80 MG, ONCE
     Route: 048
     Dates: start: 20150625, end: 20150625
  7. EMEND [Suspect]
     Active Substance: APREPITANT
     Indication: PROPHYLAXIS OF NAUSEA AND VOMITING
     Dosage: 125 MG, ONCE
     Route: 048
     Dates: start: 20150624, end: 20150624
  8. CYANOCOBALAMIN. [Concomitant]
     Active Substance: CYANOCOBALAMIN
     Indication: PROPHYLAXIS
     Dosage: 1 MG, QD
     Route: 030
     Dates: start: 20150621, end: 20150621

REACTIONS (3)
  - Aspartate aminotransferase increased [Unknown]
  - Metastases to central nervous system [Not Recovered/Not Resolved]
  - Constipation [Recovered/Resolved]

NARRATIVE: CASE EVENT DATE: 20150624
